FAERS Safety Report 6376181-X (Version None)
Quarter: 2009Q3

REPORT INFORMATION
  Report Type: 
  Country: None (occurrence: None)
  Receive Date: 20090918
  Receipt Date: 20090904
  Transmission Date: 20100115
  Serious: Yes (Hospitalization)
  Sender: FDA-Public Use
  Company Number: 2009EU003102

PATIENT
  Age: 77 Year
  Sex: Female

DRUGS (13)
  1. VESITIRIM(SOLIFENACIN) TABLET, UNKNOWN [Suspect]
     Indication: POLLAKIURIA
     Dosage: 10 MG, UID/QD, ORAL; 5MG, UID/QD
     Route: 048
     Dates: end: 20090721
  2. VESITIRIM(SOLIFENACIN) TABLET, UNKNOWN [Suspect]
     Indication: POLLAKIURIA
     Dosage: 10 MG, UID/QD, ORAL; 5MG, UID/QD
     Route: 048
     Dates: start: 20090727, end: 20090810
  3. PERINDOPRIL ERBUMINE [Concomitant]
  4. COMBIVENT [Concomitant]
  5. ASPIRIN [Concomitant]
  6. LEVOTHYROXINE SODIUM [Concomitant]
  7. GALFER (FERROUS FUMARATE) [Concomitant]
  8. CALCICHEW [Concomitant]
  9. ALENDRONAT (ALENDRONATE SODIUM) [Concomitant]
  10. METRONIDAZOLE [Concomitant]
  11. METFORMIN HCL [Concomitant]
  12. LACTULOSE [Concomitant]
  13. SENNA (SENNOSIDE A+B) [Concomitant]

REACTIONS (3)
  - BLOOD CULTURE POSITIVE [None]
  - CLOSTRIDIAL INFECTION [None]
  - HYPONATRAEMIA [None]
